FAERS Safety Report 12591531 (Version 2)
Quarter: 2016Q3

REPORT INFORMATION
  Report Type: Spontaneous
  Country: US (occurrence: US)
  Receive Date: 20160726
  Receipt Date: 20160726
  Transmission Date: 20161109
  Serious: No
  Sender: FDA-Public Use
  Company Number: US-UNITED THERAPEUTICS-UNT-2016-000912

PATIENT
  Age: 56 Year
  Sex: Female
  Weight: 58.5 kg

DRUGS (3)
  1. REVATIO [Concomitant]
     Active Substance: SILDENAFIL CITRATE
     Indication: PRODUCT USED FOR UNKNOWN INDICATION
  2. REMODULIN [Suspect]
     Active Substance: TREPROSTINIL
     Indication: PULMONARY HYPERTENSION
     Dosage: 0.022 ?G/KG, CONTINOUS
     Route: 058
     Dates: start: 20150804
  3. REMODULIN [Suspect]
     Active Substance: TREPROSTINIL
     Dosage: 0.044 ?G/KG, CONTINUING
     Route: 058

REACTIONS (7)
  - Infusion site discharge [Recovering/Resolving]
  - Infusion site pain [Unknown]
  - Infusion site warmth [Recovering/Resolving]
  - Infusion site infection [Recovering/Resolving]
  - Infusion site oedema [Recovering/Resolving]
  - Dermatitis contact [Recovered/Resolved]
  - Infusion site erythema [Recovering/Resolving]

NARRATIVE: CASE EVENT DATE: 201601
